FAERS Safety Report 19403400 (Version 1)
Quarter: 2021Q2

REPORT INFORMATION
  Report Type: Report from Study
  Country: GB (occurrence: GB)
  Receive Date: 20210610
  Receipt Date: 20210610
  Transmission Date: 20210717
  Serious: Yes (Hospitalization)
  Sender: FDA-Public Use
  Company Number: GB-ROCHE-1986733

PATIENT
  Age: 50 Year
  Sex: Female
  Weight: 98 kg

DRUGS (13)
  1. ATEZOLIZUMAB. [Suspect]
     Active Substance: ATEZOLIZUMAB
     Indication: SMALL CELL LUNG CANCER
     Dosage: MOST RECENT DOSE ON 28 JUN 2017 AT 14 26
     Route: 042
     Dates: start: 20170201
  2. DIAZEPAM. [Concomitant]
     Active Substance: DIAZEPAM
     Route: 048
  3. IBUPROFEN. [Concomitant]
     Active Substance: IBUPROFEN
     Route: 048
     Dates: start: 20170201
  4. TRAMADOL. [Concomitant]
     Active Substance: TRAMADOL
     Route: 048
  5. CARBOPLATIN. [Suspect]
     Active Substance: CARBOPLATIN
     Indication: SMALL CELL LUNG CANCER
     Dosage: INITAL TARGET OF DOSE TO ACHIEVE AN INITIAL TARGET AUC OF 5 MG/ML/MIN?MOST RECENT DOSE ON 05/APR/201
     Route: 042
     Dates: start: 20170201, end: 20170405
  6. ZAPAIN [Concomitant]
     Active Substance: ACETAMINOPHEN\CODEINE PHOSPHATE
     Route: 048
  7. ORAMORPH [Concomitant]
     Active Substance: MORPHINE SULFATE
     Route: 048
  8. ZAPAIN [Concomitant]
     Active Substance: ACETAMINOPHEN\CODEINE PHOSPHATE
     Route: 048
  9. CITALOPRAM [Concomitant]
     Active Substance: CITALOPRAM HYDROBROMIDE
     Route: 048
     Dates: start: 20170527, end: 20170808
  10. HYDROCORTISONE. [Concomitant]
     Active Substance: HYDROCORTISONE
     Route: 061
     Dates: start: 20170601, end: 20170607
  11. LORATADINE. [Concomitant]
     Active Substance: LORATADINE
     Route: 048
     Dates: start: 20170601, end: 20170614
  12. ETOPOSIDE. [Suspect]
     Active Substance: ETOPOSIDE
     Indication: SMALL CELL LUNG CANCER
     Dosage: MOST RECENT DOSE ON 07/APR/2017 AT 15:00 ?200 MG?ON DAY 1, 2 AND 3 OF EVERY 21?DAY CYCLE DURING THE
     Route: 042
     Dates: start: 20170201, end: 20170407
  13. LORAZEPAM. [Concomitant]
     Active Substance: LORAZEPAM
     Route: 048
     Dates: start: 20170405

REACTIONS (1)
  - Vomiting [Recovered/Resolved]

NARRATIVE: CASE EVENT DATE: 20170703
